FAERS Safety Report 9248844 (Version 1)
Quarter: 2013Q1

REPORT INFORMATION
  Report Type: Spontaneous
  Country: US (occurrence: None)
  Receive Date: 20121120
  Receipt Date: 20121120
  Transmission Date: 20140127
  Serious: No
  Sender: FDA-Public Use
  Company Number: 1000038568

PATIENT
  Age: 43 Year
  Sex: Male

DRUGS (2)
  1. VIIBRYD [Suspect]
     Indication: DEPRESSION
     Dosage: 10 MG (10 MG, 1 IN 1 D). ORAL
     Route: 048
     Dates: start: 20120826, end: 20120901
  2. VIIBRYD [Suspect]
     Indication: ANXIETY
     Dosage: 10 MG (10 MG, 1 IN 1 D). ORAL
     Route: 048
     Dates: start: 20120826, end: 20120901

REACTIONS (5)
  - Insomnia [None]
  - Headache [None]
  - Tinnitus [None]
  - Paraesthesia [None]
  - Neck pain [None]
